FAERS Safety Report 19462347 (Version 1)
Quarter: 2021Q2

REPORT INFORMATION
  Report Type: Report from Study
  Country: PL (occurrence: PL)
  Receive Date: 20210625
  Receipt Date: 20210625
  Transmission Date: 20210717
  Serious: Yes (Hospitalization)
  Sender: FDA-Public Use
  Company Number: PL-EXELIXIS-XL18421041812

PATIENT

DRUGS (17)
  1. ATEZOLIZUMAB. [Suspect]
     Active Substance: ATEZOLIZUMAB
     Indication: RENAL CELL CARCINOMA
     Dosage: 1200 MG, Q3WEEKS
     Route: 042
     Dates: start: 20201216
  2. NEBILET [Concomitant]
     Active Substance: NEBIVOLOL
     Indication: CORONARY ARTERY DISEASE
  3. LAPIXEN [Concomitant]
     Indication: CORONARY ARTERY DISEASE
  4. SPIRIVA [Concomitant]
     Active Substance: TIOTROPIUM BROMIDE MONOHYDRATE
  5. ACC OPTIMA [Concomitant]
  6. CONTOUR [Concomitant]
     Indication: DIABETES MELLITUS
  7. EMANERA [Concomitant]
     Active Substance: ESOMEPRAZOLE MAGNESIUM
  8. ZAFIRON [Concomitant]
  9. FLUTIXON [Concomitant]
  10. VENTOLIN [Concomitant]
     Active Substance: ALBUTEROL SULFATE
  11. SIRDALUD [Concomitant]
     Active Substance: TIZANIDINE
  12. GENSULIN N [Concomitant]
     Indication: DIABETES MELLITUS
  13. CARZAP [Concomitant]
  14. CABOZANTINIB [Suspect]
     Active Substance: CABOZANTINIB
     Indication: RENAL CELL CARCINOMA
     Dosage: 60 MG, QD
     Route: 048
     Dates: start: 20201216
  15. ATORVAGEN [Concomitant]
  16. CARDURA XL [Concomitant]
     Active Substance: DOXAZOSIN MESYLATE
     Indication: CORONARY ARTERY DISEASE
  17. TORAMIDE [Concomitant]

REACTIONS (2)
  - Disease progression [Recovering/Resolving]
  - General physical health deterioration [Recovering/Resolving]

NARRATIVE: CASE EVENT DATE: 20210610
